FAERS Safety Report 18966604 (Version 1)
Quarter: 2021Q1

REPORT INFORMATION
  Report Type: Spontaneous
  Country: RU (occurrence: RU)
  Receive Date: 20210304
  Receipt Date: 20210304
  Transmission Date: 20210420
  Serious: Yes (Life-Threatening, Other)
  Sender: FDA-Public Use
  Company Number: RU-ROCHE-2774808

PATIENT
  Age: 36 Year
  Sex: Female

DRUGS (15)
  1. TRASTUZUMAB. [Suspect]
     Active Substance: TRASTUZUMAB
     Indication: BREAST CANCER
     Route: 065
     Dates: start: 20181023
  2. HERCEPTIN [Suspect]
     Active Substance: TRASTUZUMAB
     Indication: BREAST CANCER
     Route: 065
     Dates: start: 201701
  3. KADCYLA [Concomitant]
     Active Substance: ADO-TRASTUZUMAB EMTANSINE
     Dosage: FOURTH ADMINISTRATION
     Route: 065
     Dates: start: 20201014
  4. DOCETAXEL. [Suspect]
     Active Substance: DOCETAXEL
     Indication: BREAST CANCER
     Route: 042
     Dates: start: 201701
  5. DOXORUBICIN [Suspect]
     Active Substance: DOXORUBICIN
     Indication: BREAST CANCER
     Route: 065
     Dates: start: 20170201
  6. KADCYLA [Concomitant]
     Active Substance: ADO-TRASTUZUMAB EMTANSINE
     Dosage: FIRST ADMINISTRATIO
     Route: 065
     Dates: start: 20200811
  7. KADCYLA [Concomitant]
     Active Substance: ADO-TRASTUZUMAB EMTANSINE
     Dosage: SIXTH ADMINISTRATION
     Route: 065
     Dates: start: 20201124
  8. DOCETAXEL. [Suspect]
     Active Substance: DOCETAXEL
     Route: 042
  9. KADCYLA [Concomitant]
     Active Substance: ADO-TRASTUZUMAB EMTANSINE
     Dosage: THIRD ADMINISTRATION
     Route: 065
     Dates: start: 20200922
  10. KADCYLA [Concomitant]
     Active Substance: ADO-TRASTUZUMAB EMTANSINE
     Dosage: SEVENTH ADMINISTRATION
     Route: 065
     Dates: start: 20201215
  11. CYCLOPHOSPHANE [Suspect]
     Active Substance: CYCLOPHOSPHAMIDE
     Indication: BREAST CANCER
     Route: 065
     Dates: start: 20170201
  12. PACLITAXEL. [Suspect]
     Active Substance: PACLITAXEL
     Indication: BREAST CANCER
     Route: 065
  13. KADCYLA [Concomitant]
     Active Substance: ADO-TRASTUZUMAB EMTANSINE
     Dosage: FIFTH ADMINISTRATION
     Route: 065
     Dates: start: 20201103
  14. HERTICAD [Suspect]
     Active Substance: INVESTIGATIONAL BIOSIMILARS
     Indication: BREAST CANCER
     Route: 065
     Dates: start: 201708
  15. KADCYLA [Concomitant]
     Active Substance: ADO-TRASTUZUMAB EMTANSINE
     Dosage: SECOND ADMINISTRATION
     Route: 065
     Dates: start: 20200901

REACTIONS (8)
  - Respiratory distress [Unknown]
  - Rash [Unknown]
  - Metastases to liver [Unknown]
  - Back pain [Unknown]
  - Epistaxis [Unknown]
  - Rash papular [Unknown]
  - Chills [Unknown]
  - Ill-defined disorder [Unknown]

NARRATIVE: CASE EVENT DATE: 20170115
